FAERS Safety Report 7574989-6 (Version None)
Quarter: 2011Q2

REPORT INFORMATION
  Report Type: 
  Country: None (occurrence: None)
  Receive Date: 20110627
  Receipt Date: 20110622
  Transmission Date: 20111010
  Serious: Yes (Other)
  Sender: FDA-Public Use
  Company Number: US-PFIZER INC-2011139629

PATIENT
  Sex: Female

DRUGS (1)
  1. ZOLOFT [Suspect]
     Indication: NERVOUS SYSTEM DISORDER
     Dosage: UNK
     Dates: start: 20110601

REACTIONS (6)
  - DYSSTASIA [None]
  - INSOMNIA [None]
  - BLOOD CHOLESTEROL INCREASED [None]
  - PSYCHOMOTOR HYPERACTIVITY [None]
  - DEPRESSED MOOD [None]
  - TREMOR [None]
